FAERS Safety Report 6377575-9 (Version None)
Quarter: 2009Q3

REPORT INFORMATION
  Report Type: 
  Country: None (occurrence: None)
  Receive Date: 20090923
  Receipt Date: 20090923
  Transmission Date: 20100115
  Serious: No
  Sender: FDA-Public Use
  Company Number: None

PATIENT
  Age: 38 Year
  Sex: Male
  Weight: 108 kg

DRUGS (9)
  1. DIGOXIN [Suspect]
     Indication: ATRIAL FLUTTER
     Dosage: 0.25MG PO QD
     Route: 048
     Dates: start: 20090707, end: 20090725
  2. AMIODARONE HCL [Suspect]
     Indication: ATRIAL FLUTTER
     Dosage: 400MG PO Q8 HOURS
     Route: 048
     Dates: start: 20090721, end: 20090725
  3. ALTEPLASE [Concomitant]
  4. DIPHENHYDRAMINE HCL [Concomitant]
  5. POTASSIUM CHLORIDE [Concomitant]
  6. FUROSEMIDE [Concomitant]
  7. NAC INH [Concomitant]
  8. WARFARIN [Concomitant]
  9. MAGNESIUM SULFATE [Concomitant]

REACTIONS (2)
  - ATRIAL FLUTTER [None]
  - BRADYCARDIA [None]
